FAERS Safety Report 6583971-7 (Version None)
Quarter: 2010Q1

REPORT INFORMATION
  Report Type: 
  Country: None (occurrence: None)
  Receive Date: 20100213
  Receipt Date: 20100213
  Transmission Date: 20100710
  Serious: Yes (Life-Threatening)
  Sender: FDA-Public Use
  Company Number: None

PATIENT
  Age: 33 Year
  Sex: Female
  Weight: 90.7194 kg

DRUGS (2)
  1. REGLAN [Suspect]
     Indication: NAUSEA
     Dosage: 1 PILL 10 MG 6 HOURS PO 4 1/2 MONTHS
     Route: 048
     Dates: start: 20090120, end: 20090415
  2. REGLAN [Suspect]
     Indication: VOMITING
     Dosage: 1 PILL 10 MG 6 HOURS PO 4 1/2 MONTHS
     Route: 048
     Dates: start: 20090120, end: 20090415

REACTIONS (13)
  - ACTIVITIES OF DAILY LIVING IMPAIRED [None]
  - BRAIN NEOPLASM [None]
  - DYSKINESIA [None]
  - FACIAL PALSY [None]
  - HEADACHE [None]
  - HYPOAESTHESIA [None]
  - HYPOAESTHESIA FACIAL [None]
  - IMPAIRED WORK ABILITY [None]
  - MUSCLE TWITCHING [None]
  - MUSCULAR WEAKNESS [None]
  - NERVE INJURY [None]
  - PRODUCT QUALITY ISSUE [None]
  - UNEVALUABLE EVENT [None]
